FAERS Safety Report 17499382 (Version 3)
Quarter: 2020Q1

REPORT INFORMATION
  Report Type: Report from Study
  Country: None (occurrence: ES)
  Receive Date: 20200305
  Receipt Date: 20200317
  Transmission Date: 20200409
  Serious: Yes (Hospitalization, Other)
  Sender: FDA-Public Use
  Company Number: ES-ABBVIE-20K-144-3302781-00

PATIENT
  Age: 76 Year
  Sex: Female
  Weight: 55 kg

DRUGS (1)
  1. DUODOPA [Suspect]
     Active Substance: CARBIDOPA\LEVODOPA
     Indication: PARKINSON^S DISEASE
     Route: 050
     Dates: start: 20180614

REACTIONS (11)
  - Musculoskeletal stiffness [Unknown]
  - Restlessness [Unknown]
  - Dyskinesia [Unknown]
  - Feeding disorder [Unknown]
  - Fall [Unknown]
  - Gait disturbance [Unknown]
  - Dysphagia [Unknown]
  - Parkinson^s disease [Unknown]
  - Hypophagia [Not Recovered/Not Resolved]
  - Head injury [Unknown]
  - Mobility decreased [Unknown]

NARRATIVE: CASE EVENT DATE: 202002
